FAERS Safety Report 10926307 (Version 8)
Quarter: 2019Q1

REPORT INFORMATION
  Report Type: Spontaneous
  Country: US (occurrence: US)
  Receive Date: 20150318
  Receipt Date: 20190304
  Transmission Date: 20190417
  Serious: Yes (Other)
  Sender: FDA-Public Use
  Company Number: US-PFIZER INC-2015093888

PATIENT
  Age: 58 Year
  Sex: Female
  Weight: 94 kg

DRUGS (2)
  1. BOSULIF [Suspect]
     Active Substance: BOSUTINIB MONOHYDRATE
     Dosage: 400 MG, DAILY (QD) (4 TABLETS)
     Route: 048
     Dates: start: 20141122
  2. BOSULIF [Suspect]
     Active Substance: BOSUTINIB MONOHYDRATE
     Indication: CHRONIC MYELOID LEUKAEMIA
     Dosage: 500 MG, DAILY
     Route: 048

REACTIONS (10)
  - Pneumonia [Unknown]
  - Sialoadenitis [Unknown]
  - Hot flush [Unknown]
  - Malaise [Unknown]
  - Vertigo [Unknown]
  - Hepatic enzyme increased [Unknown]
  - Feeling abnormal [Unknown]
  - Stomatitis [Unknown]
  - Fall [Unknown]
  - Haemoptysis [Unknown]
